FAERS Safety Report 15608574 (Version 2)
Quarter: 2018Q4

REPORT INFORMATION
  Report Type: Spontaneous
  Country: US (occurrence: US)
  Receive Date: 20181112
  Receipt Date: 20181121
  Transmission Date: 20190205
  Serious: Yes (Other)
  Sender: FDA-Public Use
  Company Number: US-SA-2018SA306246

PATIENT
  Age: 51 Year
  Sex: Female

DRUGS (3)
  1. FOLINIC ACID [Suspect]
     Active Substance: LEUCOVORIN
     Indication: GASTRIC CANCER
     Route: 065
     Dates: start: 2016
  2. FLUOROURACIL. [Suspect]
     Active Substance: FLUOROURACIL
     Indication: GASTRIC CANCER
     Route: 065
     Dates: start: 2016
  3. ELOXATIN [Suspect]
     Active Substance: OXALIPLATIN
     Indication: GASTRIC CANCER
     Route: 065
     Dates: start: 2016

REACTIONS (4)
  - Diarrhoea [Recovering/Resolving]
  - Dermatitis [Recovering/Resolving]
  - Nicotinic acid deficiency [Recovering/Resolving]
  - Skin hyperpigmentation [Recovering/Resolving]

NARRATIVE: CASE EVENT DATE: 201608
